FAERS Safety Report 23531747 (Version 1)
Quarter: 2024Q1

REPORT INFORMATION
  Report Type: Spontaneous
  Country: US (occurrence: None)
  Receive Date: 20240215
  Receipt Date: 20240215
  Transmission Date: 20240410
  Serious: Yes (Life-Threatening, Hospitalization, Disabling, Other)
  Sender: FDA-Public Use
  Company Number: None

PATIENT
  Age: 48 Year
  Sex: Male
  Weight: 90 kg

DRUGS (7)
  1. DEPO-MEDROL [Suspect]
     Active Substance: METHYLPREDNISOLONE ACETATE
     Indication: Spinal cord injury
  2. PREGABALIN [Concomitant]
     Active Substance: PREGABALIN
  3. DEXAMETHASONE [Concomitant]
     Active Substance: DEXAMETHASONE
  4. ACETAMINOPHEN\OXYCODONE HYDROCHLORIDE [Concomitant]
     Active Substance: ACETAMINOPHEN\OXYCODONE HYDROCHLORIDE
  5. MIDODRINE [Concomitant]
     Active Substance: MIDODRINE
  6. FLUDROCORTISONE [Concomitant]
     Active Substance: FLUDROCORTISONE
  7. Modafinal [Concomitant]

REACTIONS (3)
  - Neuralgia [None]
  - Condition aggravated [None]
  - Paralysis [None]

NARRATIVE: CASE EVENT DATE: 20220916
